FAERS Safety Report 5338983-8 (Version None)
Quarter: 2007Q2

REPORT INFORMATION
  Report Type: 
  Country: None (occurrence: None)
  Receive Date: 20070530
  Receipt Date: 20070522
  Transmission Date: 20071010
  Serious: Yes (Hospitalization)
  Sender: FDA-Public Use
  Company Number: GB-PFIZER INC-2006125481

PATIENT
  Age: 45 Year
  Sex: Male

DRUGS (9)
  1. PHENYTOIN SODIUM [Suspect]
     Indication: CONVULSION
     Route: 048
     Dates: start: 20060701, end: 20060912
  2. PHENYTOIN SODIUM [Suspect]
     Indication: ALCOHOLIC SEIZURE
  3. VALPROATE SODIUM [Suspect]
     Indication: CONVULSION
     Route: 048
     Dates: start: 20060831, end: 20060912
  4. VALPROATE SODIUM [Suspect]
     Indication: ALCOHOLIC SEIZURE
  5. LEKOVIT CA [Concomitant]
     Route: 048
  6. PROPRANOLOL [Concomitant]
     Route: 048
     Dates: start: 20041001
  7. RANITIDINE [Concomitant]
     Route: 048
  8. SENNA [Concomitant]
     Route: 048
  9. THIAMINE [Concomitant]
     Route: 048
     Dates: start: 20041001

REACTIONS (4)
  - BEDRIDDEN [None]
  - COMMUNICATION DISORDER [None]
  - CONFUSIONAL STATE [None]
  - SOMNOLENCE [None]
